FAERS Safety Report 10137683 (Version 1)
Quarter: 2014Q2

REPORT INFORMATION
  Report Type: Spontaneous
  Country: US (occurrence: None)
  Receive Date: 20140428
  Receipt Date: 20140428
  Transmission Date: 20141212
  Serious: Yes (Other)
  Sender: FDA-Public Use
  Company Number: None

PATIENT
  Age: 44 Year
  Sex: Male
  Weight: 81.65 kg

DRUGS (1)
  1. LORATADINE ( LORATADINE) [Suspect]
     Indication: HYPERSENSITIVITY
     Dates: start: 20140401, end: 20140424

REACTIONS (8)
  - Depressed mood [None]
  - Depression [None]
  - Crying [None]
  - Confusional state [None]
  - Anxiety [None]
  - Depressed mood [None]
  - Suicidal ideation [None]
  - Feeling abnormal [None]
